FAERS Safety Report 24938872 (Version 1)
Quarter: 2025Q1

REPORT INFORMATION
  Report Type: Spontaneous
  Country: US (occurrence: None)
  Receive Date: 20250206
  Receipt Date: 20250206
  Transmission Date: 20250409
  Serious: Yes (Other)
  Sender: FDA-CTU
  Company Number: None

PATIENT
  Age: 43 Year
  Sex: Female
  Weight: 54 kg

DRUGS (10)
  1. MELOXICAM [Suspect]
     Active Substance: MELOXICAM
     Indication: Intervertebral disc protrusion
     Dates: start: 20241001, end: 20250206
  2. CYCLOBENZAPRINE [Concomitant]
     Active Substance: CYCLOBENZAPRINE
  3. Oxycodeone [Concomitant]
  4. Montlucast [Concomitant]
  5. GABAPENTIN [Concomitant]
     Active Substance: GABAPENTIN
  6. AJOVY [Concomitant]
     Active Substance: FREMANEZUMAB-VFRM
  7. UBRELVY [Concomitant]
     Active Substance: UBROGEPANT
  8. TYLENOL [Concomitant]
     Active Substance: ACETAMINOPHEN
  9. MOTRIN [Concomitant]
     Active Substance: IBUPROFEN
  10. ALEVE [Concomitant]
     Active Substance: NAPROXEN SODIUM

REACTIONS (6)
  - Product dispensing error [None]
  - Incorrect dose administered [None]
  - Constipation [None]
  - Haematochezia [None]
  - Peripheral swelling [None]
  - Overdose [None]

NARRATIVE: CASE EVENT DATE: 20241001
